FAERS Safety Report 8173738-0 (Version None)
Quarter: 2012Q1

REPORT INFORMATION
  Report Type: 
  Country: None (occurrence: None)
  Receive Date: 20120224
  Receipt Date: 20120216
  Transmission Date: 20120608
  Serious: Yes (Death, Other)
  Sender: FDA-Public Use
  Company Number: 2011MA002342

PATIENT
  Age: 86 Year
  Sex: Female

DRUGS (4)
  1. FEVERALL [Suspect]
     Indication: PRODUCT USED FOR UNKNOWN INDICATION
     Route: 054
  2. CITALOPRAM HYDROBROMIDE [Suspect]
     Indication: PRODUCT USED FOR UNKNOWN INDICATION
     Dosage: 10 MG;
  3. ZOPICLONE [Suspect]
     Indication: PRODUCT USED FOR UNKNOWN INDICATION
     Dosage: 7.5 MG; QD;
  4. CITALOPRAM HYDROBROMIDE [Suspect]

REACTIONS (20)
  - VOMITING [None]
  - CONFUSIONAL STATE [None]
  - DYSARTHRIA [None]
  - TRANSIENT ISCHAEMIC ATTACK [None]
  - FEAR [None]
  - HEPATIC CONGESTION [None]
  - SKIN DISCOLOURATION [None]
  - PANIC REACTION [None]
  - MALAISE [None]
  - LUNG INFECTION [None]
  - DRUG WITHDRAWAL SYNDROME [None]
  - HYPOPNOEA [None]
  - HYPOPHAGIA [None]
  - DRY MOUTH [None]
  - HALLUCINATION [None]
  - COORDINATION ABNORMAL [None]
  - HAEMOGLOBIN DECREASED [None]
  - SOMNOLENCE [None]
  - INSOMNIA [None]
  - POSTURE ABNORMAL [None]
